FAERS Safety Report 6222042-6 (Version None)
Quarter: 2009Q2

REPORT INFORMATION
  Report Type: 
  Country: None (occurrence: None)
  Receive Date: 20090608
  Receipt Date: 20090608
  Transmission Date: 20091009
  Serious: Yes (Death)
  Sender: FDA-Public Use
  Company Number: None

PATIENT
  Sex: Male

DRUGS (1)
  1. REVLIMID [Suspect]
     Indication: MYELODYSPLASTIC SYNDROME
     Dosage: 5MG EVERY OTHER DAY ORAL
     Route: 048
     Dates: start: 20071016, end: 20071201

REACTIONS (5)
  - HAEMATEMESIS [None]
  - HAEMATOCHEZIA [None]
  - HYPOTENSION [None]
  - NEUTROPENIA [None]
  - UNRESPONSIVE TO STIMULI [None]
